FAERS Safety Report 5580707-3 (Version None)
Quarter: 2008Q1

REPORT INFORMATION
  Report Type: 
  Country: None (occurrence: None)
  Receive Date: 20080103
  Receipt Date: 20071227
  Transmission Date: 20080703
  Serious: Yes (Other)
  Sender: FDA-Public Use
  Company Number: GB-PFIZER INC-2008000186

PATIENT
  Sex: Male

DRUGS (1)
  1. CHANTIX [Suspect]
     Route: 048

REACTIONS (2)
  - RASH [None]
  - SUNBURN [None]
